FAERS Safety Report 10351528 (Version 2)
Quarter: 2014Q3

REPORT INFORMATION
  Report Type: Spontaneous
  Country: US (occurrence: US)
  Receive Date: 20140730
  Receipt Date: 20140730
  Transmission Date: 20150326
  Serious: Yes (Hospitalization, Other)
  Sender: FDA-Public Use
  Company Number: US-009507513-2011SP050830

PATIENT
  Sex: Female
  Weight: 73.48 kg

DRUGS (3)
  1. NUVARING [Suspect]
     Active Substance: ETHINYL ESTRADIOL\ETONOGESTREL
     Indication: MENOPAUSE
     Dates: start: 20080911, end: 20081108
  2. CLINDAMYCIN [Suspect]
     Active Substance: CLINDAMYCIN\CLINDAMYCIN PHOSPHATE
     Indication: URINARY TRACT INFECTION
  3. NUVARING [Suspect]
     Active Substance: ETHINYL ESTRADIOL\ETONOGESTREL
     Indication: HORMONE THERAPY
     Dates: start: 200808, end: 200811

REACTIONS (12)
  - Headache [Unknown]
  - Pulmonary embolism [Unknown]
  - Premenstrual syndrome [Unknown]
  - Varicose vein [Unknown]
  - Ovarian cyst [Unknown]
  - Muscle strain [Unknown]
  - Hepatic cyst [Unknown]
  - Bronchitis [Unknown]
  - Off label use [Unknown]
  - Arthritis [Unknown]
  - Gastrooesophageal reflux disease [Unknown]
  - Fatigue [Unknown]

NARRATIVE: CASE EVENT DATE: 200809
